FAERS Safety Report 8478221-0 (Version None)
Quarter: 2012Q2

REPORT INFORMATION
  Report Type: 
  Country: None (occurrence: None)
  Receive Date: 20120629
  Receipt Date: 20120626
  Transmission Date: 20120825
  Serious: Yes (Hospitalization)
  Sender: FDA-Public Use
  Company Number: US-ALEXION-A201200670

PATIENT
  Sex: Male
  Weight: 94 kg

DRUGS (9)
  1. BLEOMYCIN SULFATE [Suspect]
     Indication: HODGKIN'S DISEASE
     Dosage: 23 UNITS
     Route: 042
     Dates: start: 20120405, end: 20120421
  2. RADIATION [Concomitant]
     Indication: HODGKIN'S DISEASE
     Dosage: 17 DOSES
  3. ADRIAMYCIN PFS [Suspect]
     Indication: HODGKIN'S DISEASE
     Dosage: 57 MG
     Route: 042
     Dates: start: 20120405, end: 20120421
  4. DACARBAZINE [Suspect]
     Indication: HODGKIN'S DISEASE
     Dosage: UNK
     Route: 042
     Dates: start: 20120405, end: 20120421
  5. VITAMIN B-12 [Concomitant]
     Indication: SUPPLEMENTATION THERAPY
     Dosage: 25 MG, QD
     Route: 048
  6. SOLIRIS [Suspect]
     Indication: PAROXYSMAL NOCTURNAL HAEMOGLOBINURIA
     Dosage: 900 MG, Q2W
     Route: 042
     Dates: start: 20120329
  7. SOLIRIS [Suspect]
     Dosage: 600 MG, QW
     Route: 042
     Dates: start: 20120301, end: 20120322
  8. FOLIC ACID [Concomitant]
     Indication: SUPPLEMENTATION THERAPY
     Dosage: 1 MG, QD
     Route: 048
  9. VINBLASTINE SULFATE [Suspect]
     Indication: HODGKIN'S DISEASE
     Dosage: 13.6 MG
     Route: 042
     Dates: start: 20120405, end: 20120421

REACTIONS (1)
  - BACTERAEMIA [None]
